FAERS Safety Report 6557630-0 (Version None)
Quarter: 2010Q1

REPORT INFORMATION
  Report Type: 
  Country: None (occurrence: None)
  Receive Date: 20100126
  Receipt Date: 20090915
  Transmission Date: 20100710
  Serious: Yes (Other)
  Sender: FDA-Public Use
  Company Number: LMI-2009-00243

PATIENT
  Age: 52 Year
  Sex: Female
  Weight: 95.2554 kg

DRUGS (6)
  1. DEFINITY [Suspect]
     Indication: CARDIAC STRESS TEST
     Dosage: 1.3 ML DEFINITY DILUTED WITH 9 ML NS (2 ML), INTRAVENOUS BOLUS
     Route: 040
     Dates: start: 20090914, end: 20090914
  2. DEFINITY [Suspect]
     Indication: CHEST PAIN
     Dosage: 1.3 ML DEFINITY DILUTED WITH 9 ML NS (2 ML), INTRAVENOUS BOLUS
     Route: 040
     Dates: start: 20090914, end: 20090914
  3. MULTI-VITAMINS [Concomitant]
  4. MAGNESIUM (MAGNESIUM) [Concomitant]
  5. IRON (IRON) [Concomitant]
  6. UNSPECIFIED HERBAL THERAPY (UNSPECIFIED HERBAL) [Concomitant]

REACTIONS (4)
  - DYSPNOEA [None]
  - HYPERTENSION [None]
  - HYPOXIA [None]
  - WHEEZING [None]
